FAERS Safety Report 24809714 (Version 1)
Quarter: 2025Q1

REPORT INFORMATION
  Report Type: Spontaneous
  Country: CN (occurrence: CN)
  Receive Date: 20250106
  Receipt Date: 20250106
  Transmission Date: 20250408
  Serious: Yes (Other)
  Sender: SHANGHAI HENGRUI PHARMACEUTICAL
  Company Number: CN-Shanghai Hengrui Pharmaceutical Co., Ltd.-2168455

PATIENT
  Age: 39 Year
  Sex: Female
  Weight: 59 kg

DRUGS (2)
  1. SEVOFLURANE [Suspect]
     Active Substance: SEVOFLURANE
     Indication: Induction of anaesthesia
     Dates: start: 20241224, end: 20241224
  2. ROCURONIUM BROMIDE [Suspect]
     Active Substance: ROCURONIUM BROMIDE
     Dates: start: 20241224, end: 20241224

REACTIONS (1)
  - Anaphylactic shock [Recovering/Resolving]

NARRATIVE: CASE EVENT DATE: 20241224
